FAERS Safety Report 21233690 (Version 2)
Quarter: 2022Q4

REPORT INFORMATION
  Report Type: Spontaneous
  Country: IN (occurrence: IN)
  Receive Date: 20220819
  Receipt Date: 20221114
  Transmission Date: 20230113
  Serious: Yes (Death, Other)
  Sender: FDA-Public Use
  Company Number: IN-PFIZER INC-PV202200044953

PATIENT
  Age: 79 Year
  Sex: Female

DRUGS (1)
  1. PALBOCICLIB [Suspect]
     Active Substance: PALBOCICLIB
     Dosage: 125 MG, 1X/DAY
     Route: 048

REACTIONS (9)
  - Death [Fatal]
  - Blood sodium decreased [Unknown]
  - Blood potassium decreased [Unknown]
  - Blood creatinine increased [Unknown]
  - Abnormal behaviour [Unknown]
  - Pyrexia [Unknown]
  - Somnolence [Unknown]
  - Dyspnoea [Unknown]
  - Eating disorder [Unknown]
